FAERS Safety Report 19073368 (Version 1)
Quarter: 2021Q1

REPORT INFORMATION
  Report Type: Spontaneous
  Country: JP (occurrence: JP)
  Receive Date: 20210330
  Receipt Date: 20210330
  Transmission Date: 20210420
  Serious: Yes (Hospitalization, Other)
  Sender: FDA-Public Use
  Company Number: JP-PFIZER INC-2021297695

PATIENT
  Age: 85 Year
  Sex: Female
  Weight: 40 kg

DRUGS (12)
  1. ANAEMETRO 500MG [Suspect]
     Active Substance: METRONIDAZOLE
     Indication: BRAIN ABSCESS
     Dosage: 500 MG, 3X/DAY
     Route: 041
     Dates: start: 20210215, end: 20210222
  2. CEFTRIAXONE NA [Concomitant]
     Active Substance: CEFTRIAXONE
  3. CARBAZOCHROME SODIUM SULFONATE TRIHYDRATE [Concomitant]
  4. GLYCERIN?FRUCTOSE [Concomitant]
     Active Substance: FRUCTOSE\GLYCERIN
  5. VANCOMYCIN HYDROCHLORIDE. [Concomitant]
     Active Substance: VANCOMYCIN HYDROCHLORIDE
  6. OMEPRAZOLE. [Concomitant]
     Active Substance: OMEPRAZOLE
  7. HARTMANN?G3 [Concomitant]
  8. ACMAIN D [Concomitant]
  9. POTASSIUM ASPARTATE [Concomitant]
     Active Substance: POTASSIUM ASPARTATE
  10. TRANEXAMIC ACID. [Concomitant]
     Active Substance: TRANEXAMIC ACID
  11. DIAINA COMBINATION [Concomitant]
  12. E KEPPRA [Concomitant]
     Active Substance: LEVETIRACETAM

REACTIONS (3)
  - Dyslalia [Recovered/Resolved]
  - Toxic encephalopathy [Recovering/Resolving]
  - Depressed level of consciousness [Recovered/Resolved]

NARRATIVE: CASE EVENT DATE: 20210218
